FAERS Safety Report 4673317-3 (Version None)
Quarter: 2005Q2

REPORT INFORMATION
  Report Type: 
  Country: None (occurrence: None)
  Receive Date: 20050525
  Receipt Date: 20050517
  Transmission Date: 20051028
  Serious: Yes (Hospitalization)
  Sender: FDA-Public Use
  Company Number: AU-BRISTOL-MYERS SQUIBB COMPANY-12972055

PATIENT
  Sex: Male

DRUGS (1)
  1. ETOPOPHOS FOR INJ [Suspect]
     Route: 051

REACTIONS (1)
  - INTERNATIONAL NORMALISED RATIO INCREASED [None]
